FAERS Safety Report 16326305 (Version 1)
Quarter: 2019Q2

REPORT INFORMATION
  Report Type: Spontaneous
  Country: CZ (occurrence: CZ)
  Receive Date: 20190517
  Receipt Date: 20190517
  Transmission Date: 20190711
  Serious: Yes (Hospitalization, Other)
  Sender: FDA-Public Use
  Company Number: CZ-JNJFOC-20190512940

PATIENT
  Age: 87 Year
  Sex: Female

DRUGS (3)
  1. PARACETAMOL [Suspect]
     Active Substance: ACETAMINOPHEN
     Indication: PAIN
     Route: 065
  2. GABAPENTIN. [Suspect]
     Active Substance: GABAPENTIN
     Indication: PAIN
     Route: 048
  3. TRAMADOL HYDROCHLORIDE. [Suspect]
     Active Substance: TRAMADOL HYDROCHLORIDE
     Indication: PAIN
     Route: 048

REACTIONS (12)
  - Weight decreased [Recovering/Resolving]
  - Eye disorder [Recovering/Resolving]
  - Decreased appetite [Recovering/Resolving]
  - Sarcopenia [Unknown]
  - Fracture [Unknown]
  - Pubis fracture [Unknown]
  - Asthenia [Recovering/Resolving]
  - Drug ineffective [Unknown]
  - Gait disturbance [Recovering/Resolving]
  - Joint dislocation [Unknown]
  - Ulcerative keratitis [Unknown]
  - Hypophagia [Recovering/Resolving]
